FAERS Safety Report 10058662 (Version 1)
Quarter: 2014Q2

REPORT INFORMATION
  Report Type: Report from Study
  Country: DE (occurrence: DE)
  Receive Date: 20140404
  Receipt Date: 20140404
  Transmission Date: 20141212
  Serious: Yes (Hospitalization, Other)
  Sender: FDA-Public Use
  Company Number: DE-SA-2014SA040218

PATIENT
  Age: 71 Year
  Sex: Male
  Weight: 103 kg

DRUGS (6)
  1. MULTAQ [Suspect]
     Indication: ATRIAL FIBRILLATION
  2. BETA BLOCKING AGENTS [Concomitant]
     Dates: start: 201101
  3. THROMBIN [Concomitant]
     Indication: THROMBOSIS PROPHYLAXIS
     Dates: start: 20120618
  4. LISINOPRIL [Concomitant]
  5. XIPAMIDE [Concomitant]
  6. ALLOPURINOL [Concomitant]

REACTIONS (1)
  - Atrial fibrillation [Unknown]
